FAERS Safety Report 24585571 (Version 1)
Quarter: 2024Q4

REPORT INFORMATION
  Report Type: Spontaneous
  Country: US (occurrence: US)
  Receive Date: 20241106
  Receipt Date: 20241106
  Transmission Date: 20250114
  Serious: No
  Sender: SUNOVION
  Company Number: US-SUMITOMO PHARMA SWITZERLAND GMBH-2024SPA004424

PATIENT

DRUGS (1)
  1. GEMTESA [Suspect]
     Active Substance: VIBEGRON
     Indication: Hypertonic bladder
     Route: 065

REACTIONS (6)
  - Epigastric discomfort [Unknown]
  - Pollakiuria [Unknown]
  - Dizziness [Unknown]
  - Headache [Unknown]
  - Diarrhoea [Unknown]
  - Urinary tract infection [Unknown]
